FAERS Safety Report 8082216-9 (Version None)
Quarter: 2012Q1

REPORT INFORMATION
  Report Type: 
  Country: None (occurrence: None)
  Receive Date: 20120127
  Receipt Date: 20110131
  Transmission Date: 20120608
  Serious: No
  Sender: FDA-Public Use
  Company Number: US-ABBOTT-11P-163-0702123-00

PATIENT
  Sex: Female
  Weight: 61.29 kg

DRUGS (7)
  1. HUMIRA [Suspect]
     Indication: INFLAMMATORY BOWEL DISEASE
  2. DICYCLOMINE [Concomitant]
     Indication: PRODUCT USED FOR UNKNOWN INDICATION
  3. HUMIRA [Suspect]
     Indication: ARTHRITIS
  4. SYNTHROID [Concomitant]
     Indication: PRODUCT USED FOR UNKNOWN INDICATION
  5. HUMIRA [Suspect]
     Indication: CROHN'S DISEASE
  6. ASACOL [Concomitant]
     Indication: PRODUCT USED FOR UNKNOWN INDICATION
  7. IMODIUM [Concomitant]
     Indication: PRODUCT USED FOR UNKNOWN INDICATION

REACTIONS (4)
  - HEAD DISCOMFORT [None]
  - NASOPHARYNGITIS [None]
  - PYREXIA [None]
  - OROPHARYNGEAL PAIN [None]
